FAERS Safety Report 5723501-2 (Version None)
Quarter: 2008Q2

REPORT INFORMATION
  Report Type: 
  Country: None (occurrence: None)
  Receive Date: 20080424
  Receipt Date: 20080228
  Transmission Date: 20081010
  Serious: Yes (Disabling)
  Sender: FDA-Public Use
  Company Number: ADE001-08

PATIENT
  Sex: Male

DRUGS (4)
  1. AMIODARONE HCL [Suspect]
     Indication: ATRIAL FIBRILLATION
     Dosage: 200 MG DAILY ORALLY
     Route: 048
  2. COUAMDIN [Concomitant]
  3. COREG [Concomitant]
  4. DIGOXIN [Concomitant]

REACTIONS (2)
  - VISION BLURRED [None]
  - VISUAL DISTURBANCE [None]
